FAERS Safety Report 5621957-7 (Version None)
Quarter: 2008Q1

REPORT INFORMATION
  Report Type: 
  Country: None (occurrence: None)
  Receive Date: 20080211
  Receipt Date: 20080205
  Transmission Date: 20080703
  Serious: Yes (Life-Threatening, Hospitalization)
  Sender: FDA-Public Use
  Company Number: B0484448A

PATIENT
  Age: 58 Year
  Sex: Male
  Weight: 66 kg

DRUGS (47)
  1. HEPSERA [Suspect]
     Indication: HEPATIC CIRRHOSIS
     Dosage: 10MG PER DAY
     Route: 048
     Dates: start: 20030221, end: 20060217
  2. ZEFIX [Suspect]
     Indication: DRUG USE FOR UNKNOWN INDICATION
     Dosage: 100MG PER DAY
     Route: 048
     Dates: start: 20010101, end: 20060217
  3. METHYLPREDNISOLONE SODIUM SUCCINATE [Suspect]
     Route: 042
     Dates: start: 20051031
  4. PREDNISOLONE [Suspect]
     Route: 048
     Dates: start: 20051031
  5. BAKTAR [Concomitant]
     Route: 048
  6. FUROSEMIDE [Concomitant]
     Route: 048
  7. GASTER D [Concomitant]
     Route: 048
  8. LIVACT [Concomitant]
     Route: 048
  9. PL [Concomitant]
     Route: 048
  10. SELTOUCH [Concomitant]
     Route: 062
  11. ALDACTONE [Concomitant]
     Route: 048
  12. DIART [Concomitant]
     Route: 048
  13. LENDORMIN [Concomitant]
     Route: 048
  14. AZUNOL [Concomitant]
     Route: 065
  15. VITAMIN A [Concomitant]
     Route: 061
  16. LIDOMEX [Concomitant]
     Route: 061
  17. MAGMITT [Concomitant]
     Route: 048
  18. MONILAC [Concomitant]
     Route: 048
  19. (TOCLASE) CARBETAPHENTANE [Concomitant]
     Route: 048
  20. BISOLVON [Concomitant]
     Route: 048
  21. LOXONIN [Concomitant]
     Route: 048
  22. UFT [Concomitant]
     Route: 048
  23. CRAVIT [Concomitant]
     Route: 048
  24. ALLOID G [Concomitant]
     Route: 048
  25. DEQUALINIUM CHLORIDE [Concomitant]
  26. AMINOLEBAN EN [Concomitant]
     Route: 048
  27. GLAKAY [Concomitant]
     Route: 048
  28. MOHRUS TAPE [Concomitant]
     Route: 062
  29. INTEBAN [Concomitant]
     Route: 061
  30. NEO-MINOPHAGEN-C [Concomitant]
     Route: 042
  31. ALBUMIN (HUMAN) [Concomitant]
     Route: 042
  32. FUROSEMIDE [Concomitant]
  33. HEPARIN SODIUM INJECTION [Concomitant]
     Route: 042
  34. POTACOL-R [Concomitant]
     Route: 042
  35. SOLDEM 3A [Concomitant]
     Route: 042
  36. VITAMEDIN [Concomitant]
     Route: 042
  37. FUNGUARD [Concomitant]
     Route: 042
  38. MAINTENANCE FLUID [Concomitant]
     Route: 042
  39. KAYTWO N [Concomitant]
     Route: 042
  40. AMINO ACID INJ [Concomitant]
     Route: 042
  41. PREDONINE [Concomitant]
  42. INTRAFAT [Concomitant]
     Route: 042
  43. SOLULACT [Concomitant]
     Route: 042
  44. XYLOCAINE [Concomitant]
  45. ROPION [Concomitant]
     Route: 042
  46. SOLU-CORTEF [Concomitant]
  47. SOLU-MEDROL [Concomitant]
     Route: 042

REACTIONS (2)
  - HEPATITIS B [None]
  - PNEUMOCYSTIS JIROVECI PNEUMONIA [None]
